FAERS Safety Report 4416549-1 (Version None)
Quarter: 2004Q2

REPORT INFORMATION
  Report Type: 
  Country: None (occurrence: None)
  Receive Date: 20040630
  Receipt Date: 20040608
  Transmission Date: 20050107
  Serious: Yes (Other)
  Sender: FDA-Public Use
  Company Number: ENTC2004-0108

PATIENT

DRUGS (3)
  1. STALEVO 100 [Suspect]
     Indication: RESTLESS LEGS SYNDROME
     Dosage: ORAL
     Route: 048
  2. CARBIDOPA W/LEVODOPA [Concomitant]
  3. CLONAZEPAM [Concomitant]

REACTIONS (5)
  - EYE DISORDER [None]
  - MYALGIA [None]
  - NASAL DRYNESS [None]
  - PAIN IN EXTREMITY [None]
  - PAIN IN JAW [None]
